FAERS Safety Report 17396745 (Version 1)
Quarter: 2020Q1

REPORT INFORMATION
  Report Type: Spontaneous
  Country: US (occurrence: US)
  Receive Date: 20200210
  Receipt Date: 20200210
  Transmission Date: 20200409
  Serious: No
  Sender: FDA-Public Use
  Company Number: US-PFIZER INC-2020053301

PATIENT
  Age: 70 Year
  Sex: Female
  Weight: 77.11 kg

DRUGS (1)
  1. SOLU-CORTEF [Suspect]
     Active Substance: HYDROCORTISONE SODIUM SUCCINATE
     Indication: ADRENAL INSUFFICIENCY
     Dosage: UNK UNK, AS NEEDED, [100MG, INJECT 2ML INTO SHOULDER, THIGH, OR BUTTOCKS MUSCLE AS NEEDED]
     Dates: start: 201906

REACTIONS (4)
  - Vomiting [Unknown]
  - Dehydration [Unknown]
  - Product use complaint [Unknown]
  - Malaise [Unknown]
